FAERS Safety Report 9228250 (Version 2)
Quarter: 2013Q2

REPORT INFORMATION
  Report Type: Spontaneous
  Country: NL (occurrence: None)
  Receive Date: 20130410
  Receipt Date: 20130529
  Transmission Date: 20140414
  Serious: Yes (Hospitalization, Other)
  Sender: FDA-Public Use
  Company Number: NL-20130006

PATIENT
  Age: 75 Year
  Sex: Female

DRUGS (11)
  1. HEXABRIX 320 (IOXAGLIC ACID) UNKNOWN [Suspect]
     Indication: PRODUCT USED FOR UNKNOWN INDICATION
     Dosage: 350 ML (350 ML, 1 IN 1 D) INTRA-ARTERIAL
     Route: 013
     Dates: start: 20130318, end: 20130318
  2. HEXABRIX 320 (IOXAGLIC ACID) UNKNOWN [Suspect]
     Indication: CATHETERISATION CARDIAC
     Dosage: 350 ML (350 ML, 1 IN 1 D) INTRA-ARTERIAL
     Route: 013
     Dates: start: 20130318, end: 20130318
  3. HEPARINE (HEPARINE) (HEPARINE) [Concomitant]
  4. LIDOCAINE (LIDOCAINE) [Concomitant]
  5. SODIUM CHLORIDE [Concomitant]
  6. ZOCOR (SIMVASTATIN) (SIMVASTATIN) [Concomitant]
  7. PLAVIX (CLOPIDOGREL) (CLOPIDOGREL) [Concomitant]
  8. ACETOSAL (ACETYLSALICYLIC ACID) (ACETYLSALICYLIC ACID) [Concomitant]
  9. FOSINOPRIL (FOSINOPRIL) [Concomitant]
  10. NITROSPRAY [Concomitant]
  11. ISORDIL (ISOSORBIDE DINITRATE) [Concomitant]

REACTIONS (6)
  - Contrast media allergy [None]
  - Infection [None]
  - Leukopenia [None]
  - Chills [None]
  - Dyspnoea [None]
  - Hypersensitivity [None]
